FAERS Safety Report 24414668 (Version 3)
Quarter: 2025Q4

REPORT INFORMATION
  Report Type: Spontaneous
  Country: US (occurrence: US)
  Receive Date: 20241009
  Receipt Date: 20251207
  Transmission Date: 20260118
  Serious: No
  Sender: ROCHE
  Company Number: US-ROCHE-10000100667

PATIENT
  Age: 9 Year
  Sex: Male

DRUGS (3)
  1. HEMLIBRA [Suspect]
     Active Substance: EMICIZUMAB-KXWH
     Indication: Factor VIII deficiency
     Dosage: STRENGTH- 60MG/0.4ML
     Route: 058
     Dates: start: 201501
  2. HEMLIBRA [Suspect]
     Active Substance: EMICIZUMAB-KXWH
     Dosage: STRENGTH- 300MG/2ML
     Route: 058
     Dates: start: 201501
  3. advate injection [Concomitant]
     Route: 042

REACTIONS (5)
  - Fall [Unknown]
  - Neck injury [Unknown]
  - Haemorrhage [Unknown]
  - Tooth fracture [Unknown]
  - Head injury [Unknown]

NARRATIVE: CASE EVENT DATE: 20240927
